FAERS Safety Report 15562086 (Version 1)
Quarter: 2018Q4

REPORT INFORMATION
  Report Type: Spontaneous
  Country: US (occurrence: US)
  Receive Date: 20181029
  Receipt Date: 20181029
  Transmission Date: 20190205
  Serious: Yes (Hospitalization, Other)
  Sender: FDA-Public Use
  Company Number: US-PURACAP PHARMACEUTICAL LLC-2018EPC00435

PATIENT
  Age: 25 Year
  Sex: Male

DRUGS (2)
  1. NIGHTTIME SLEEP AID MAXIMUM STRENGTH [Suspect]
     Active Substance: DIPHENHYDRAMINE HYDROCHLORIDE
     Dosage: OVER HALF OF A 100-COUNT BOTTLE, ONCE
     Dates: start: 20181008, end: 20181008
  2. NIGHTTIME SLEEP AID MAXIMUM STRENGTH [Suspect]
     Active Substance: DIPHENHYDRAMINE HYDROCHLORIDE
     Dosage: UNK

REACTIONS (3)
  - Cardiac disorder [Unknown]
  - Intentional overdose [Recovered/Resolved]
  - Dyskinesia [Unknown]

NARRATIVE: CASE EVENT DATE: 20181008
